FAERS Safety Report 16019216 (Version 1)
Quarter: 2019Q1

REPORT INFORMATION
  Report Type: Spontaneous
  Country: US (occurrence: US)
  Receive Date: 20190228
  Receipt Date: 20190228
  Transmission Date: 20190418
  Serious: Yes (Hospitalization, Other)
  Sender: FDA-Public Use
  Company Number: PHEH2019US009016

PATIENT
  Sex: Male

DRUGS (7)
  1. CLEMASTINE FUMARATE TABLETS USP [Suspect]
     Active Substance: CLEMASTINE FUMARATE
     Indication: DEMYELINATION
     Dosage: 2 DF, BID
     Route: 065
     Dates: start: 20120101
  2. BUPROPION HCL [Suspect]
     Active Substance: BUPROPION HYDROCHLORIDE
     Indication: DEPRESSION
     Dosage: 300 MG, QD
     Route: 065
     Dates: start: 20111203
  3. AMPYRA [Suspect]
     Active Substance: DALFAMPRIDINE
     Indication: MULTIPLE SCLEROSIS
     Dosage: 10 MG, QD
     Route: 065
     Dates: start: 20111203
  4. LOVASTATIN TABLETS, USP [Suspect]
     Active Substance: LOVASTATIN
     Indication: BLOOD CHOLESTEROL INCREASED
     Dosage: 20 MG, QD (ONE TABLET AT BED TIME)
     Route: 065
     Dates: start: 20170501, end: 20171101
  5. SERTRALINE HCL [Suspect]
     Active Substance: SERTRALINE HYDROCHLORIDE
     Indication: ASTHENIA
  6. VITAMIN D [Suspect]
     Active Substance: CHOLECALCIFEROL
     Indication: IMMUNE SYSTEM DISORDER
     Dosage: 5000 IU, QD
     Route: 065
     Dates: start: 20111203
  7. SERTRALINE HCL [Suspect]
     Active Substance: SERTRALINE HYDROCHLORIDE
     Indication: DEPRESSION
     Dosage: 25 MG, QD
     Route: 065
     Dates: start: 20170303

REACTIONS (7)
  - Seizure [Recovering/Resolving]
  - Gait disturbance [Recovering/Resolving]
  - Fatigue [Recovering/Resolving]
  - Intentional product use issue [Recovering/Resolving]
  - Incorrect dose administered [Recovering/Resolving]
  - Drug ineffective [Recovering/Resolving]
  - Multiple sclerosis [Recovering/Resolving]

NARRATIVE: CASE EVENT DATE: 2012
